FAERS Safety Report 11342624 (Version 1)
Quarter: 2015Q3

REPORT INFORMATION
  Report Type: Spontaneous
  Country: CH (occurrence: IN)
  Receive Date: 20150805
  Receipt Date: 20150805
  Transmission Date: 20151125
  Serious: Yes (Other)
  Sender: FDA-Public Use
  Company Number: CH-LPDUSPRD-20150580

PATIENT
  Age: 36 Year
  Sex: Female

DRUGS (1)
  1. FERINJECT [Suspect]
     Active Substance: FERRIC CARBOXYMALTOSE
     Dosage: 100 MG
     Route: 041

REACTIONS (7)
  - Generalised erythema [Recovered/Resolved]
  - Paraesthesia [Recovered/Resolved]
  - Respiratory distress [Unknown]
  - Tachycardia [Recovered/Resolved]
  - Restlessness [Recovered/Resolved]
  - Pruritus generalised [Recovered/Resolved]
  - Product preparation error [Unknown]
